FAERS Safety Report 5050827-0 (Version None)
Quarter: 2006Q3

REPORT INFORMATION
  Report Type: 
  Country: None (occurrence: None)
  Receive Date: 20060710
  Receipt Date: 20060622
  Transmission Date: 20061208
  Serious: Yes (Other)
  Sender: FDA-Public Use
  Company Number: PHBS2006PL09404

PATIENT
  Age: 35 Year
  Sex: Male

DRUGS (3)
  1. CYCLOSPORINE [Suspect]
     Indication: PSORIATIC ARTHROPATHY
     Dosage: SEE IMAGE
  2. METHOTREXATE [Suspect]
     Indication: PSORIATIC ARTHROPATHY
     Dosage: SEE IMAGE
  3. METHYLPREDNISOLONE [Suspect]
     Indication: PSORIATIC ARTHROPATHY
     Dosage: SEE IMAGE

REACTIONS (5)
  - GINGIVAL HYPERPLASIA [None]
  - HAEMANGIOMA OF SKIN [None]
  - SKIN DEPIGMENTATION [None]
  - SKIN NODULE [None]
  - VASCULAR SKIN DISORDER [None]
